FAERS Safety Report 7314965-1 (Version None)
Quarter: 2011Q1

REPORT INFORMATION
  Report Type: 
  Country: None (occurrence: None)
  Receive Date: 20110225
  Receipt Date: 20100222
  Transmission Date: 20110831
  Serious: No
  Sender: FDA-Public Use
  Company Number: US-MYLANLABS-2010S1002867

PATIENT
  Sex: Male

DRUGS (4)
  1. CLARAVIS [Suspect]
     Route: 048
     Dates: start: 20091228, end: 20100218
  2. CLARAVIS [Suspect]
     Indication: ACNE
     Route: 048
     Dates: start: 20091008, end: 20091201
  3. AMNESTEEM [Suspect]
     Indication: ACNE
     Route: 048
     Dates: start: 20091008, end: 20091201
  4. AMNESTEEM [Suspect]
     Route: 048
     Dates: start: 20091228, end: 20100218

REACTIONS (4)
  - DYSURIA [None]
  - MOOD SWINGS [None]
  - BLOOD TRIGLYCERIDES INCREASED [None]
  - IMPAIRED HEALING [None]
